FAERS Safety Report 18847340 (Version 1)
Quarter: 2021Q1

REPORT INFORMATION
  Report Type: Other
  Country: FR (occurrence: FR)
  Receive Date: 20210203
  Receipt Date: 20210203
  Transmission Date: 20210419
  Serious: Yes (Hospitalization)
  Sender: FDA-Public Use
  Company Number: FR-CELLTRION INC.-2021FR001040

PATIENT

DRUGS (2)
  1. SOLIRIS [Suspect]
     Active Substance: ECULIZUMAB
     Indication: ANTIPHOSPHOLIPID SYNDROME
     Dosage: 4 DF,  3/WEEK
     Route: 041
     Dates: start: 20191220, end: 20200717
  2. TRUXIMA [Suspect]
     Active Substance: RITUXIMAB-ABBS
     Indication: SYSTEMIC LUPUS ERYTHEMATOSUS
     Dosage: 600 MG, 1 TOTAL
     Route: 041
     Dates: start: 20191129, end: 20191207

REACTIONS (2)
  - Neutropenia [Not Recovered/Not Resolved]
  - Off label use [Unknown]

NARRATIVE: CASE EVENT DATE: 20200717
